FAERS Safety Report 5586005-6 (Version None)
Quarter: 2008Q1

REPORT INFORMATION
  Report Type: 
  Country: None (occurrence: None)
  Receive Date: 20080104
  Receipt Date: 20071220
  Transmission Date: 20080703
  Serious: Yes (Other)
  Sender: FDA-Public Use
  Company Number: GXKR2007GB10925

PATIENT
  Age: 30 Year
  Sex: Female
  Weight: 84 kg

DRUGS (6)
  1. TRAMADOL HCL [Suspect]
  2. LIDOCAINE [Suspect]
     Indication: BACK PAIN
     Dosage: 1 DF, Q12H, TOPICAL
     Route: 061
     Dates: start: 20071105, end: 20071110
  3. DICLOFENAC (DICLOFENAC) [Concomitant]
  4. IBUPROFEN [Concomitant]
  5. KAPAKE (CODEINE PHOSPHATE, PARACETAMOL) [Concomitant]
  6. ACETAMINOPHEN [Concomitant]

REACTIONS (4)
  - DRUG INTERACTION [None]
  - ERYTHEMA [None]
  - HYPERHIDROSIS [None]
  - MALAISE [None]
